FAERS Safety Report 7253852-4 (Version None)
Quarter: 2011Q1

REPORT INFORMATION
  Report Type: 
  Country: None (occurrence: None)
  Receive Date: 20110129
  Receipt Date: 20100413
  Transmission Date: 20110831
  Serious: No
  Sender: FDA-Public Use
  Company Number: US-ABBOTT-10P-163-0638739-00

PATIENT
  Sex: Male

DRUGS (1)
  1. HUMIRA [Suspect]
     Indication: PSORIASIS
     Route: 058

REACTIONS (6)
  - FEELING COLD [None]
  - PAIN [None]
  - ERYTHEMA [None]
  - INFECTION [None]
  - DYSPNOEA [None]
  - INFLUENZA LIKE ILLNESS [None]
